FAERS Safety Report 4656675-5 (Version None)
Quarter: 2005Q2

REPORT INFORMATION
  Report Type: 
  Country: None (occurrence: None)
  Receive Date: 20050331
  Receipt Date: 20040819
  Transmission Date: 20051028
  Serious: Yes (Hospitalization)
  Sender: FDA-Public Use
  Company Number: US087851

PATIENT
  Age: 36 Year
  Sex: Male

DRUGS (7)
  1. NEULASTA [Suspect]
     Indication: CHEMOTHERAPY
     Dates: start: 20040728
  2. IFOSFAMIDE [Concomitant]
  3. CARBOPLATIN [Concomitant]
  4. ETOPOSIDE [Concomitant]
  5. DIPHENHYDRAMINE HCL [Concomitant]
  6. LORAZEPAM [Concomitant]
  7. ONDANSETRON HYDROCHLORIDE [Concomitant]

REACTIONS (3)
  - FEBRILE NEUTROPENIA [None]
  - OEDEMA [None]
  - OEDEMA PERIPHERAL [None]
